FAERS Safety Report 5542842-5 (Version None)
Quarter: 2007Q4

REPORT INFORMATION
  Report Type: 
  Country: None (occurrence: None)
  Receive Date: 20071207
  Receipt Date: 20071127
  Transmission Date: 20080405
  Serious: Yes (Other)
  Sender: FDA-Public Use
  Company Number: 2007US002958

PATIENT
  Age: 17 Year
  Sex: Male

DRUGS (6)
  1. PROGRAF [Suspect]
     Indication: RENAL TRANSPLANT
     Dosage: 4 MG,BID
  2. MYCOPHENOLATE MOFETIL [Suspect]
     Indication: RENAL TRANSPLANT
     Dosage: 500 MG,BID; 1 G,BID
  3. CYTOMEGALOVIRUS IMMUNE GLOBIN (IMMUNOGLOBULIN CYTOMEGALOVIRUS) [Concomitant]
  4. VALGANCICLOVIR HCL [Concomitant]
  5. FLUCONAZOLE [Concomitant]
  6. TRIMETHOPRIM COMP.(SULFAMETHOXAZOLE, TRIMETHOPRIM) [Concomitant]

REACTIONS (17)
  - BIOPSY KIDNEY ABNORMAL [None]
  - BLOOD FIBRINOGEN DECREASED [None]
  - BLOOD LACTATE DEHYDROGENASE INCREASED [None]
  - COMPLEMENT FACTOR C3 DECREASED [None]
  - DRUG TOXICITY [None]
  - FIBRIN D DIMER INCREASED [None]
  - HAEMOGLOBIN DECREASED [None]
  - HYDRONEPHROSIS [None]
  - HYPERTENSION [None]
  - MOUTH ULCERATION [None]
  - NEPHRITIS INTERSTITIAL [None]
  - PYREXIA [None]
  - RENAL TUBULAR DISORDER [None]
  - RENAL TUBULAR NECROSIS [None]
  - THROMBOTIC MICROANGIOPATHY [None]
  - ULTRASOUND KIDNEY ABNORMAL [None]
  - WHITE BLOOD CELL COUNT DECREASED [None]
